FAERS Safety Report 5742975-4 (Version None)
Quarter: 2008Q2

REPORT INFORMATION
  Report Type: 
  Country: None (occurrence: None)
  Receive Date: 20080519
  Receipt Date: 20080515
  Transmission Date: 20081010
  Serious: Yes (Life-Threatening, Hospitalization)
  Sender: FDA-Public Use
  Company Number: PHEH2008US04615

PATIENT
  Age: 89 Year
  Sex: Female
  Weight: 56.689 kg

DRUGS (2)
  1. DIOVAN [Suspect]
     Dosage: 160 MG, QD
     Route: 048
  2. CIPRO [Concomitant]
     Dosage: 500 MG, Q12H
     Route: 048

REACTIONS (1)
  - ACUTE RESPIRATORY DISTRESS SYNDROME [None]
